FAERS Safety Report 25370953 (Version 2)
Quarter: 2025Q2

REPORT INFORMATION
  Report Type: Spontaneous
  Country: JP (occurrence: JP)
  Receive Date: 20250528
  Receipt Date: 20250606
  Transmission Date: 20250717
  Serious: Yes (Other)
  Sender: BOEHRINGER INGELHEIM
  Company Number: JP-NBI-2025-BI-072931

PATIENT

DRUGS (2)
  1. DABIGATRAN ETEXILATE MESYLATE [Suspect]
     Active Substance: DABIGATRAN ETEXILATE MESYLATE
     Indication: Drug therapy
  2. PRASUGREL HYDROCHLORIDE [Concomitant]
     Active Substance: PRASUGREL HYDROCHLORIDE
     Indication: Cerebral ischaemia

REACTIONS (3)
  - Sepsis [Unknown]
  - Pulmonary embolism [Unknown]
  - Subcutaneous haematoma [Unknown]
